FAERS Safety Report 24898342 (Version 1)
Quarter: 2025Q1

REPORT INFORMATION
  Report Type: Spontaneous
  Country: GB (occurrence: GB)
  Receive Date: 20250129
  Receipt Date: 20250129
  Transmission Date: 20250409
  Serious: Yes (Death, Hospitalization, Other)
  Sender: AMGEN
  Company Number: GB-AMGEN-GBRSP2025015542

PATIENT

DRUGS (1)
  1. DARBEPOETIN ALFA [Suspect]
     Active Substance: DARBEPOETIN ALFA
     Indication: Anaemia
     Dosage: ONE TO FOUR TIMES, QWK
     Route: 058

REACTIONS (6)
  - Death [Fatal]
  - Cardiovascular disorder [Fatal]
  - Unevaluable event [Unknown]
  - Peritonitis [Unknown]
  - Myocardial infarction [Unknown]
  - Embolism [Unknown]
